FAERS Safety Report 24104490 (Version 1)
Quarter: 2024Q3

REPORT INFORMATION
  Report Type: Spontaneous
  Country: DE (occurrence: DE)
  Receive Date: 20240717
  Receipt Date: 20240717
  Transmission Date: 20241017
  Serious: Yes (Hospitalization)
  Sender: SANDOZ
  Company Number: DE-CELGENE-DEU-20180403934

PATIENT
  Age: 79 Year
  Sex: Male

DRUGS (3)
  1. DEXAMETHASONE [Suspect]
     Active Substance: DEXAMETHASONE
     Indication: Plasma cell myeloma
     Dosage: 20 MILLIGRAM
     Route: 048
     Dates: start: 20180316, end: 20180409
  2. REVLIMID [Suspect]
     Active Substance: LENALIDOMIDE
     Indication: Plasma cell myeloma
     Dosage: (PFT) 10 MILLIGRAM DURATION TEXT : CYCLE 2
     Route: 048
     Dates: start: 20180421, end: 20180425
  3. REVLIMID [Suspect]
     Active Substance: LENALIDOMIDE
     Dosage: (PFT) 10 MILLIGRAMDURATION TEXT : CYCLE 1
     Route: 048
     Dates: start: 20180316, end: 20180409

REACTIONS (3)
  - Pyrexia [Recovered/Resolved]
  - Hyperkalaemia [Recovered/Resolved]
  - Rash [Recovered/Resolved]

NARRATIVE: CASE EVENT DATE: 20180323
